FAERS Safety Report 4531993-X (Version None)
Quarter: 2004Q4

REPORT INFORMATION
  Report Type: 
  Country: None (occurrence: None)
  Receive Date: 20041217
  Receipt Date: 20041206
  Transmission Date: 20050328
  Serious: Yes (Other)
  Sender: FDA-Public Use
  Company Number: 2004104068

PATIENT
  Age: 41 Year
  Sex: Male
  Weight: 104.3273 kg

DRUGS (2)
  1. BENADRYL [Suspect]
     Indication: SLEEP DISORDER
     Dosage: 2 TABLETS QD, ORAL
     Route: 048
     Dates: start: 20030101, end: 20041205
  2. CIMETIDINE [Concomitant]

REACTIONS (4)
  - ASTHENIA [None]
  - INITIAL INSOMNIA [None]
  - RESTLESSNESS [None]
  - SEXUAL DYSFUNCTION [None]
